FAERS Safety Report 18515976 (Version 2)
Quarter: 2020Q4

REPORT INFORMATION
  Report Type: Spontaneous
  Country: US (occurrence: US)
  Receive Date: 20201118
  Receipt Date: 20201120
  Transmission Date: 20210114
  Serious: No
  Sender: FDA-Public Use
  Company Number: NVSC2020US299795

PATIENT
  Sex: Male

DRUGS (1)
  1. TRAVATAN Z [Suspect]
     Active Substance: TRAVOPROST
     Indication: PRODUCT USED FOR UNKNOWN INDICATION
     Dosage: 1 DRP, BID
     Route: 065

REACTIONS (4)
  - Product packaging quantity issue [Unknown]
  - Upper limb fracture [Unknown]
  - Limb discomfort [Unknown]
  - Product container issue [Unknown]
